FAERS Safety Report 9571022 (Version 3)
Quarter: 2013Q4

REPORT INFORMATION
  Report Type: Spontaneous
  Country: US (occurrence: None)
  Receive Date: 20130927
  Receipt Date: 20131127
  Transmission Date: 20140711
  Serious: Yes (Other)
  Sender: FDA-Public Use
  Company Number: ADR-2013-01711

PATIENT
  Sex: Female

DRUGS (6)
  1. LIORESAL [Suspect]
     Indication: MUSCLE SPASTICITY
  2. LOSARTAN [Concomitant]
  3. INSULIN [Concomitant]
  4. ALBUTEROL [Concomitant]
  5. BUPROPION [Concomitant]
  6. ZYRTEC [Concomitant]

REACTIONS (2)
  - Cerebrospinal fluid leakage [None]
  - Pseudomeningocele [None]
